FAERS Safety Report 8625713-7 (Version None)
Quarter: 2012Q3

REPORT INFORMATION
  Report Type: 
  Country: None (occurrence: None)
  Receive Date: 20120827
  Receipt Date: 20120817
  Transmission Date: 20120928
  Serious: Yes (Other)
  Sender: FDA-Public Use
  Company Number: US-ASTRAZENECA-2012SE15402

PATIENT
  Age: 58 Year
  Sex: Male

DRUGS (2)
  1. PRILOSEC [Suspect]
     Indication: GASTROOESOPHAGEAL REFLUX DISEASE
     Route: 048
  2. NEXIUM [Suspect]
     Indication: ULCER
     Route: 048

REACTIONS (6)
  - DYSPEPSIA [None]
  - DRUG INEFFECTIVE [None]
  - GASTROINTESTINAL INFLAMMATION [None]
  - GASTRIC DISORDER [None]
  - ACCIDENT AT WORK [None]
  - GASTROOESOPHAGEAL REFLUX DISEASE [None]
